FAERS Safety Report 4363184-X (Version None)
Quarter: 2004Q2

REPORT INFORMATION
  Report Type: 
  Country: None (occurrence: None)
  Receive Date: 20040524
  Receipt Date: 20040113
  Transmission Date: 20050107
  Serious: No
  Sender: FDA-Public Use
  Company Number: US-GLAXOSMITHKLINE-A0492910A

PATIENT
  Age: 34 Year
  Sex: Male

DRUGS (2)
  1. BACTROBAN [Suspect]
     Route: 045
     Dates: start: 20040107, end: 20040107
  2. CEPHALEXIN [Concomitant]

REACTIONS (4)
  - DYSPNOEA [None]
  - NASAL OEDEMA [None]
  - SWOLLEN TONGUE [None]
  - THROAT TIGHTNESS [None]
